FAERS Safety Report 10053483 (Version 3)
Quarter: 2014Q3

REPORT INFORMATION
  Report Type: Report from Study
  Country: FR (occurrence: FR)
  Receive Date: 20140402
  Receipt Date: 20140704
  Transmission Date: 20150326
  Serious: Yes (Disabling, Other)
  Sender: FDA-Public Use
  Company Number: PHHY2014FR038687

PATIENT
  Age: 74 Year
  Sex: Female
  Weight: 81 kg

DRUGS (13)
  1. KARDEGIC [Concomitant]
     Active Substance: ASPIRIN LYSINE
     Dosage: 75 MG, DAILY
     Dates: start: 2010
  2. DAFALGAN [Concomitant]
     Active Substance: ACETAMINOPHEN
     Dates: start: 2011
  3. TRAMADOL [Concomitant]
     Active Substance: TRAMADOL
     Dosage: UNK
     Dates: start: 2012
  4. ZYMAD [Concomitant]
     Active Substance: CHOLECALCIFEROL
     Dates: start: 201301
  5. ACLASTA [Suspect]
     Active Substance: ZOLEDRONIC ACID
     Dosage: 5 MG,
     Dates: start: 20130311
  6. PANTOPRAZOLE [Concomitant]
     Active Substance: PANTOPRAZOLE SODIUM
     Dosage: 20 MG, DAILY
     Dates: start: 2010
  7. CACIT VITAMIN D3 [Concomitant]
     Active Substance: CALCIUM CARBONATE\CHOLECALCIFEROL
  8. ACLASTA [Suspect]
     Active Substance: ZOLEDRONIC ACID
     Indication: OSTEOPOROSIS
     Dosage: 5 MG,
     Dates: start: 201111, end: 201301
  9. AMIODARONE [Concomitant]
     Active Substance: AMIODARONE
     Dates: start: 2010
  10. IMODIUM [Concomitant]
     Active Substance: LOPERAMIDE HYDROCHLORIDE
     Dates: start: 2009
  11. BISOPROLOL [Concomitant]
     Active Substance: BISOPROLOL
     Indication: HYPERTENSION
     Dosage: 1 DF, DAILY
     Dates: start: 2010
  12. STILNOX [Concomitant]
     Active Substance: ZOLPIDEM TARTRATE
     Dates: start: 2001
  13. ALTIM//CORTIVAZOL [Concomitant]
     Active Substance: CORTIVAZOL
     Dates: start: 201303

REACTIONS (9)
  - Pelvic fracture [Recovered/Resolved]
  - Gait disturbance [Unknown]
  - Pelvic pain [Unknown]
  - Bone callus excessive [Unknown]
  - Intervertebral disc disorder [Unknown]
  - Spondylolisthesis [Unknown]
  - Pubis fracture [Unknown]
  - Back pain [Recovered/Resolved]
  - Pseudarthrosis [Unknown]

NARRATIVE: CASE EVENT DATE: 20130204
